FAERS Safety Report 4331256-1 (Version None)
Quarter: 2004Q1

REPORT INFORMATION
  Report Type: 
  Country: None (occurrence: None)
  Receive Date: 20040331
  Receipt Date: 20040323
  Transmission Date: 20041129
  Serious: Yes (Hospitalization)
  Sender: FDA-Public Use
  Company Number: K200400424

PATIENT
  Age: 80 Year
  Sex: Female

DRUGS (8)
  1. ALTACE [Suspect]
     Dosage: 2.5 MG, QD, ORAL
     Route: 048
  2. LEVOTHYROXINE SODIUM [Suspect]
     Dosage: ORAL
     Route: 048
  3. TENORMIN [Suspect]
     Dosage: ORAL
     Route: 048
  4. STILNOX (ZOLPIDEM) TABLET, 10 MG [Suspect]
     Dosage: ORAL
     Route: 048
  5. MOPRAL (OMEPRZAOLE) CAPSULE, 20 MG [Suspect]
     Dosage: 20 MG, ORAL
     Route: 048
  6. CORDARONE [Suspect]
     Indication: ARRHYTHMIA
     Dosage: 200 MG, TIW, ORAL
     Route: 048
  7. ASPIRIN [Concomitant]
  8. VASTAREL(TRIMETAZIDINE HYDROCHLORIDE) [Concomitant]

REACTIONS (2)
  - LUMBAR SPINAL STENOSIS [None]
  - NEUROPATHY PERIPHERAL [None]
